FAERS Safety Report 11950695 (Version 3)
Quarter: 2016Q1

REPORT INFORMATION
  Report Type: Spontaneous
  Country: US (occurrence: US)
  Receive Date: 20160126
  Receipt Date: 20160205
  Transmission Date: 20160526
  Serious: Yes (Hospitalization, Other)
  Sender: FDA-Public Use
  Company Number: US-PFIZER INC-2016027944

PATIENT
  Age: 67 Year
  Sex: Female
  Weight: 74 kg

DRUGS (1)
  1. IBRANCE [Suspect]
     Active Substance: PALBOCICLIB
     Indication: BREAST CANCER
     Dosage: 125 MG, CYCLIC (DAY 1-21 Q 28 DAYS)
     Route: 048
     Dates: start: 20160111

REACTIONS (14)
  - Rash [Unknown]
  - Pain in extremity [Unknown]
  - Diarrhoea [Unknown]
  - Pruritus [Unknown]
  - Fatigue [Unknown]
  - Abdominal pain upper [Unknown]
  - Fall [Unknown]
  - Paraesthesia [Unknown]
  - Vertigo [Unknown]
  - Migraine [Unknown]
  - Hypokalaemia [Unknown]
  - Joint injury [Unknown]
  - Soft tissue injury [Unknown]
  - Nausea [Not Recovered/Not Resolved]
